FAERS Safety Report 6913919-4 (Version None)
Quarter: 2010Q3

REPORT INFORMATION
  Report Type: 
  Country: None (occurrence: None)
  Receive Date: 20100809
  Receipt Date: 20100728
  Transmission Date: 20110219
  Serious: Yes (Hospitalization)
  Sender: FDA-Public Use
  Company Number: US-WYE-H16568610

PATIENT
  Sex: Female
  Weight: 77.18 kg

DRUGS (8)
  1. EFFEXOR XR [Suspect]
     Indication: DEPRESSION
     Route: 048
  2. EFFEXOR XR [Suspect]
     Indication: ANXIETY
     Route: 048
     Dates: end: 20070101
  3. EFFEXOR XR [Suspect]
     Route: 048
     Dates: start: 20070101, end: 20070101
  4. EFFEXOR XR [Suspect]
     Dosage: ^WAS INCREASED BY 75 MG WEEKLY FOR 6 WEEKS^
     Route: 048
     Dates: start: 20070101, end: 20070101
  5. EFFEXOR XR [Suspect]
     Route: 048
     Dates: start: 20070101
  6. LITHIUM [Concomitant]
     Dosage: UNKNOWN
  7. LAMOTRIGINE [Concomitant]
     Dosage: UNKNOWN
  8. CLONAZEPAM [Concomitant]
     Indication: ANXIETY

REACTIONS (7)
  - DEPRESSED MOOD [None]
  - DRUG EFFECT DECREASED [None]
  - FEELING ABNORMAL [None]
  - HYSTERECTOMY [None]
  - NERVOUSNESS [None]
  - PALPITATIONS [None]
  - TREMOR [None]
